FAERS Safety Report 19406881 (Version 3)
Quarter: 2021Q3

REPORT INFORMATION
  Report Type: Spontaneous
  Country: FR (occurrence: FR)
  Receive Date: 20210612
  Receipt Date: 20210707
  Transmission Date: 20211014
  Serious: Yes (Other)
  Sender: FDA-Public Use
  Company Number: FR-ROCHE-2789805

PATIENT
  Sex: Female
  Weight: 47 kg

DRUGS (1)
  1. ROACTEMRA [Suspect]
     Active Substance: TOCILIZUMAB
     Indication: NEUROMYELITIS OPTICA SPECTRUM DISORDER
     Route: 042
     Dates: start: 202003

REACTIONS (2)
  - Off label use [Unknown]
  - Neutropenia [Not Recovered/Not Resolved]
